FAERS Safety Report 6009589-2 (Version None)
Quarter: 2008Q4

REPORT INFORMATION
  Report Type: 
  Country: None (occurrence: None)
  Receive Date: 20081217
  Receipt Date: 20081015
  Transmission Date: 20090506
  Serious: No
  Sender: FDA-Public Use
  Company Number: US-BAYER-200836246NA

PATIENT
  Sex: Female

DRUGS (2)
  1. YASMIN [Suspect]
     Indication: ACNE
     Route: 048
  2. YAZ [Suspect]
     Indication: UNEVALUABLE EVENT

REACTIONS (2)
  - ADVERSE DRUG REACTION [None]
  - NO ADVERSE EVENT [None]
